FAERS Safety Report 11193208 (Version 1)
Quarter: 2015Q2

REPORT INFORMATION
  Report Type: Report from Study
  Country: US (occurrence: None)
  Receive Date: 20150603
  Receipt Date: 20150603
  Transmission Date: 20150821
  Serious: No
  Sender: FDA-Public Use
  Company Number: 2015TASUS000660

PATIENT
  Age: 46 Year
  Sex: Male
  Weight: 81.6 kg

DRUGS (17)
  1. OXYCONTIN [Concomitant]
     Active Substance: OXYCODONE HYDROCHLORIDE
  2. AMBIEN [Concomitant]
     Active Substance: ZOLPIDEM TARTRATE
  3. NIFEDIPINE. [Concomitant]
     Active Substance: NIFEDIPINE
  4. OMEPRAZOLE W/SODIUM BICARBONATE [Concomitant]
  5. NORCO (HYDROCODONE BITARTRATE, PARACETAMOL) [Concomitant]
  6. SIMVASTATIN. [Concomitant]
     Active Substance: SIMVASTATIN
  7. ALLOPURINOL. [Concomitant]
     Active Substance: ALLOPURINOL
  8. PREDNISONE (PREDNISONE ACETATE) [Concomitant]
  9. CALCITRATE (CALCIUM CITRATE) [Concomitant]
  10. CLONIDINE HCL (CLONIDINE HYDROCHLORIDE) [Concomitant]
  11. LUNESTA [Concomitant]
     Active Substance: ESZOPICLONE
  12. FUROSEMIDE. [Concomitant]
     Active Substance: FUROSEMIDE
  13. LEVOTHYROXINE SODIUM. [Concomitant]
     Active Substance: LEVOTHYROXINE SODIUM
  14. HETLIOZ [Suspect]
     Active Substance: TASIMELTEON
     Indication: CIRCADIAN RHYTHM SLEEP DISORDER
     Dosage: DRUG START DATE WAS LISTED AS 19-DEC-2014 WHICH PRECEEDS THE EVENT DATE.
     Route: 048
     Dates: start: 20141219
  15. NEORAL [Concomitant]
     Active Substance: CYCLOSPORINE
  16. ALENDRONATE SODIUM. [Concomitant]
     Active Substance: ALENDRONATE SODIUM
  17. DIPHENHYDRAMINE HCL (DIPHENHYDRAMINE HYDROCHLORIDE) [Concomitant]

REACTIONS (6)
  - Poor quality sleep [None]
  - Hypersomnia [None]
  - Drug ineffective [None]
  - Insomnia [None]
  - Hypoaesthesia oral [None]
  - Hypnopompic hallucination [None]

NARRATIVE: CASE EVENT DATE: 20141218
